FAERS Safety Report 7324002-0 (Version None)
Quarter: 2011Q1

REPORT INFORMATION
  Report Type: 
  Country: None (occurrence: None)
  Receive Date: 20110301
  Receipt Date: 20110115
  Transmission Date: 20110831
  Serious: Yes (Hospitalization, Other)
  Sender: FDA-Public Use
  Company Number: US-BAXTER-2010BH001584

PATIENT
  Age: 63 Year
  Sex: Female
  Weight: 106 kg

DRUGS (17)
  1. HEPARIN SODIUM INJECTION [Suspect]
     Route: 065
     Dates: start: 20080118, end: 20080118
  2. HEPARIN SODIUM INJECTION [Suspect]
     Indication: BLADDER REPAIR
     Route: 042
     Dates: start: 20080118, end: 20080202
  3. IMIPRAMINE HYDROCHLORIDE [Concomitant]
     Indication: PRODUCT USED FOR UNKNOWN INDICATION
     Route: 065
  4. HEPARIN SODIUM INJECTION [Suspect]
     Indication: HAEMATOMA EVACUATION
     Route: 042
     Dates: start: 20080118, end: 20080202
  5. HEPARIN SODIUM INJECTION [Suspect]
     Route: 065
     Dates: start: 20080118, end: 20080118
  6. MURO 128 [Concomitant]
     Indication: PRODUCT USED FOR UNKNOWN INDICATION
     Route: 047
  7. LORATADINE [Concomitant]
     Indication: PRODUCT USED FOR UNKNOWN INDICATION
     Route: 065
  8. CARBOXYMETHYLCELLULOSE SODIUM [Concomitant]
     Indication: PRODUCT USED FOR UNKNOWN INDICATION
     Route: 047
  9. HEPARIN SODIUM INJECTION [Suspect]
     Indication: THROMBOSIS PROPHYLAXIS
     Route: 042
     Dates: start: 20080118, end: 20080202
  10. HEPARIN SODIUM INJECTION [Suspect]
     Route: 065
     Dates: start: 20080118, end: 20080118
  11. HEPARIN SODIUM INJECTION [Suspect]
     Route: 065
     Dates: start: 20080118, end: 20080118
  12. PRILOSEC [Concomitant]
     Indication: PRODUCT USED FOR UNKNOWN INDICATION
     Route: 065
  13. ESOMEPRAZOLE [Concomitant]
     Indication: PRODUCT USED FOR UNKNOWN INDICATION
     Route: 065
  14. ERGOCALCIFEROL [Concomitant]
     Indication: PRODUCT USED FOR UNKNOWN INDICATION
     Route: 065
  15. HEPARIN SODIUM INJECTION [Suspect]
     Indication: SMALL INTESTINAL RESECTION
     Route: 042
     Dates: start: 20080118, end: 20080202
  16. OXYBUTYNIN CHLORIDE [Concomitant]
     Indication: PRODUCT USED FOR UNKNOWN INDICATION
     Route: 065
  17. FLUTICASONE [Concomitant]
     Indication: PRODUCT USED FOR UNKNOWN INDICATION
     Route: 045

REACTIONS (19)
  - TACHYCARDIA [None]
  - OXYGEN SATURATION DECREASED [None]
  - LEUKOCYTOSIS [None]
  - ABDOMINAL PAIN [None]
  - THYROID NEOPLASM [None]
  - ILEUS [None]
  - THROMBOSIS [None]
  - HYPOVOLAEMIA [None]
  - GASTROINTESTINAL HAEMORRHAGE [None]
  - GASTROINTESTINAL INFECTION [None]
  - HAEMATOMA [None]
  - PYREXIA [None]
  - PULMONARY EMBOLISM [None]
  - OLIGURIA [None]
  - OSTEOARTHRITIS [None]
  - FISTULA DISCHARGE [None]
  - VOMITING [None]
  - ORGAN FAILURE [None]
  - NAUSEA [None]
